FAERS Safety Report 23488328 (Version 3)
Quarter: 2024Q1

REPORT INFORMATION
  Report Type: Spontaneous
  Country: US (occurrence: US)
  Receive Date: 20240206
  Receipt Date: 20240215
  Transmission Date: 20240409
  Serious: Yes (Disabling)
  Sender: FDA-Public Use
  Company Number: US-SA-SAC20240130001201

PATIENT
  Age: 69 Year
  Sex: Female
  Weight: 77 kg

DRUGS (2)
  1. DUPIXENT [Suspect]
     Active Substance: DUPILUMAB
     Indication: Dermatitis atopic
     Dosage: 300 MG, QOW
     Route: 058
     Dates: start: 202303
  2. BUPROPION [Concomitant]
     Active Substance: BUPROPION
     Dosage: 150 MG QD
     Dates: start: 202303

REACTIONS (3)
  - Neurodermatitis [Unknown]
  - Rash pruritic [Unknown]
  - Papule [Unknown]
